FAERS Safety Report 7823606 (Version 26)
Quarter: 2014Q3

REPORT INFORMATION
  Report Type: Spontaneous
  Country: US (occurrence: US)
  Receive Date: 20110223
  Receipt Date: 20140721
  Transmission Date: 20150326
  Serious: Yes (Hospitalization, Other)
  Sender: FDA-Public Use
  Company Number: PHEH2011US00450

PATIENT
  Age: 62 Year
  Sex: Male
  Weight: 82.54 kg

DRUGS (18)
  1. DOXYCYCLINE HYCLATE. [Concomitant]
     Active Substance: DOXYCYCLINE HYCLATE
  2. ASPIRIN. [Concomitant]
     Active Substance: ASPIRIN
     Dosage: 81 MG,UNK
     Route: 048
  3. LYRICA [Concomitant]
     Active Substance: PREGABALIN
     Dosage: 300 MG, BID
  4. FOSAMAX [Suspect]
     Active Substance: ALENDRONATE SODIUM
     Dosage: 70 MG, QW
  5. CELEBREX [Concomitant]
     Active Substance: CELECOXIB
     Dosage: 200 MG, BID
  6. IMODIUM [Concomitant]
     Active Substance: LOPERAMIDE HYDROCHLORIDE
     Dosage: 4 MG, BID
  7. ZOMETA [Suspect]
     Active Substance: ZOLEDRONIC ACID
     Indication: PROSTATE CANCER
     Dosage: 4 MG, QMO
     Route: 042
     Dates: start: 200309, end: 200503
  8. NITROGLYCERIN. [Concomitant]
     Active Substance: NITROGLYCERIN
  9. VALTREX [Concomitant]
     Active Substance: VALACYCLOVIR HYDROCHLORIDE
  10. EFFEXOR [Concomitant]
     Active Substance: VENLAFAXINE HYDROCHLORIDE
  11. ACETAMINOPHEN. [Concomitant]
     Active Substance: ACETAMINOPHEN
  12. AREDIA [Suspect]
     Active Substance: PAMIDRONATE DISODIUM
     Indication: PROSTATE CANCER
     Dosage: 60 MG, PER QUARTER
     Route: 041
     Dates: start: 2002
  13. LIPITOR [Concomitant]
     Active Substance: ATORVASTATIN CALCIUM
  14. ASACOL [Concomitant]
     Active Substance: MESALAMINE
  15. PERIDEX [Concomitant]
     Active Substance: CHLORHEXIDINE GLUCONATE
  16. ACTONEL [Concomitant]
     Active Substance: RISEDRONATE SODIUM
     Dosage: 70 MG, QW
  17. AVODART [Concomitant]
     Active Substance: DUTASTERIDE
  18. UROXATRAL [Concomitant]
     Active Substance: ALFUZOSIN HYDROCHLORIDE

REACTIONS (109)
  - Injury [Unknown]
  - Quality of life decreased [Unknown]
  - Hiatus hernia [Unknown]
  - Exposed bone in jaw [Unknown]
  - Diarrhoea [Unknown]
  - Intervertebral disc protrusion [Unknown]
  - Metastases to bone [Unknown]
  - Radiation proctitis [Unknown]
  - Ephelides [Unknown]
  - Skin wrinkling [Unknown]
  - Arteriosclerosis [Unknown]
  - Vertebral lesion [Unknown]
  - Tongue ulceration [Unknown]
  - Rectal haemorrhage [Unknown]
  - Herpes simplex [Unknown]
  - Lyme disease [Unknown]
  - Prostatic haemorrhage [Unknown]
  - Tooth discolouration [Unknown]
  - Osteosclerosis [Unknown]
  - Erythema [Unknown]
  - Periodontitis [Unknown]
  - Colitis microscopic [Unknown]
  - Haematochezia [Unknown]
  - Oropharyngeal pain [Recovered/Resolved]
  - Gingival inflammation [Unknown]
  - Hepatic steatosis [Unknown]
  - Metastases to lymph nodes [Unknown]
  - Hand fracture [Unknown]
  - Photodermatosis [Unknown]
  - Pleural fibrosis [Unknown]
  - Exostosis [Unknown]
  - Jaw disorder [Unknown]
  - Gait disturbance [Unknown]
  - Hypogonadism [Unknown]
  - Gynaecomastia [Unknown]
  - Spinal osteoarthritis [Unknown]
  - Atelectasis [Unknown]
  - Pulpitis dental [Unknown]
  - Prostate cancer metastatic [Unknown]
  - Actinic keratosis [Unknown]
  - Musculoskeletal pain [Unknown]
  - Cutis laxa [Unknown]
  - Diverticulum [Unknown]
  - Bone loss [Unknown]
  - Eye irritation [Unknown]
  - Arthralgia [Unknown]
  - Muscular weakness [Unknown]
  - Malaise [Recovered/Resolved]
  - Hyperglycaemia [Unknown]
  - Sinusitis [Unknown]
  - Polymyalgia rheumatica [Unknown]
  - Dental plaque [Unknown]
  - Skin lesion [Unknown]
  - Bone disorder [Unknown]
  - Haemorrhoids [Unknown]
  - Pyrexia [Unknown]
  - Pain [Unknown]
  - Pain in jaw [Unknown]
  - Osteopenia [Unknown]
  - Upper respiratory tract infection [Unknown]
  - Rib fracture [Recovering/Resolving]
  - Photopsia [Unknown]
  - Inguinal hernia [Unknown]
  - Hyperlipidaemia [Unknown]
  - Tooth loss [Unknown]
  - Neoplasm skin [Unknown]
  - Carotid artery stenosis [Unknown]
  - Osteoarthritis [Unknown]
  - Vertebral foraminal stenosis [Unknown]
  - Anxiety [Unknown]
  - Decreased interest [Unknown]
  - Fear [Unknown]
  - Upper limb fracture [Unknown]
  - Patella fracture [Unknown]
  - Osteoporosis [Unknown]
  - Lymphadenopathy [Unknown]
  - Babesiosis [Unknown]
  - Visual impairment [Recovered/Resolved]
  - Nasal congestion [Recovered/Resolved]
  - Anaemia [Unknown]
  - Spinal deformity [Unknown]
  - Deafness [Unknown]
  - Vitreous detachment [Unknown]
  - Arteriosclerosis coronary artery [Unknown]
  - Soft tissue disorder [Unknown]
  - Primary sequestrum [Unknown]
  - Post-traumatic neck syndrome [Unknown]
  - Ligament sprain [Unknown]
  - Solar lentigo [Unknown]
  - Tooth deposit [Unknown]
  - Hyperplasia [Unknown]
  - Proctalgia [Unknown]
  - Animal bite [Unknown]
  - Intervertebral disc space narrowing [Unknown]
  - Pelvic pain [Unknown]
  - Myalgia [Unknown]
  - Osteonecrosis of jaw [Unknown]
  - Leukocytosis [Unknown]
  - Spinal column stenosis [Unknown]
  - Dysuria [Unknown]
  - Gastroenteritis [Unknown]
  - Aortic calcification [Unknown]
  - Road traffic accident [Unknown]
  - Insomnia [Unknown]
  - Metastases to thorax [Unknown]
  - Hypertrophy [Unknown]
  - Dental caries [Unknown]
  - Nephrocalcinosis [Unknown]
  - Abdominal pain [Unknown]

NARRATIVE: CASE EVENT DATE: 20121129
